FAERS Safety Report 25685033 (Version 2)
Quarter: 2025Q3

REPORT INFORMATION
  Report Type: Spontaneous
  Country: US (occurrence: US)
  Receive Date: 20250815
  Receipt Date: 20250820
  Transmission Date: 20251021
  Serious: Yes (Hospitalization)
  Sender: MYLAN
  Company Number: US-MYLANLABS-2025M1069222

PATIENT
  Age: 45 Year
  Sex: Male

DRUGS (3)
  1. DOXORUBICIN [Suspect]
     Active Substance: DOXORUBICIN
     Indication: Kaposi^s sarcoma AIDS related
  2. BICTEGRAVIR\EMTRICITABINE\TENOFOVIR ALAFENAMIDE [Concomitant]
     Active Substance: BICTEGRAVIR\EMTRICITABINE\TENOFOVIR ALAFENAMIDE
     Indication: HIV infection
  3. Immunoglobulin [Concomitant]
     Indication: Immune thrombocytopenia

REACTIONS (2)
  - Drug ineffective [Unknown]
  - Disease progression [Unknown]
